FAERS Safety Report 4483889-X (Version None)
Quarter: 2004Q4

REPORT INFORMATION
  Report Type: 
  Country: None (occurrence: None)
  Receive Date: 20041014
  Receipt Date: 20041014
  Transmission Date: 20050328
  Serious: Yes (Life-Threatening, Hospitalization)
  Sender: FDA-Public Use
  Company Number: None

PATIENT
  Age: 69 Year
  Sex: Male
  Weight: 108.8633 kg

DRUGS (2)
  1. CLOFARABINE [Suspect]
     Indication: ACUTE MYELOID LEUKAEMIA
     Dosage: 30 MG/M2 IV Q DAY X 5 70 MG
     Route: 042
     Dates: start: 20040819, end: 20040913
  2. CYTARABINE [Suspect]
     Dosage: 100 MG/M2 -230 MG CONT X 5 DAYS
     Dates: start: 20040913

REACTIONS (1)
  - FEBRILE NEUTROPENIA [None]
